FAERS Safety Report 17457335 (Version 3)
Quarter: 2023Q1

REPORT INFORMATION
  Report Type: Report from Study
  Country: US (occurrence: US)
  Receive Date: 20200225
  Receipt Date: 20230201
  Transmission Date: 20230418
  Serious: Yes (Hospitalization, Other)
  Sender: FDA-Public Use
  Company Number: US-19K-163-3172897-00

PATIENT
  Sex: Female
  Weight: 72.57 kg

DRUGS (17)
  1. HUMIRA [Suspect]
     Active Substance: ADALIMUMAB
     Indication: Crohn^s disease
     Route: 058
     Dates: start: 2010, end: 202203
  2. HUMIRA [Suspect]
     Active Substance: ADALIMUMAB
     Route: 058
     Dates: start: 202204
  3. VITAMIN B12 [Concomitant]
     Active Substance: CYANOCOBALAMIN
     Indication: Supplementation therapy
  4. CHANTIX [Suspect]
     Active Substance: VARENICLINE TARTRATE
     Indication: Product used for unknown indication
     Route: 048
  5. IMURAN [Concomitant]
     Active Substance: AZATHIOPRINE
     Indication: Crohn^s disease
  6. PROZAC [Concomitant]
     Active Substance: FLUOXETINE HYDROCHLORIDE
     Indication: Depression
  7. TRAZODONE [Concomitant]
     Active Substance: TRAZODONE HYDROCHLORIDE
     Indication: Sleep disorder
  8. CALCIUM [Concomitant]
     Active Substance: CALCIUM
     Indication: Mineral supplementation
     Dosage: SOFT CHEWS
  9. ZOLOFT [Concomitant]
     Active Substance: SERTRALINE HYDROCHLORIDE
     Indication: Depression
  10. APPLE CIDER VINEGAR [Concomitant]
     Active Substance: APPLE CIDER VINEGAR
     Indication: Supplementation therapy
  11. CALCIUM [Concomitant]
     Active Substance: CALCIUM
     Indication: Mineral supplementation
  12. MAGNESIUM [Concomitant]
     Active Substance: MAGNESIUM
     Indication: Muscle disorder
  13. GABAPENTIN [Concomitant]
     Active Substance: GABAPENTIN
     Indication: Neuralgia
  14. OXYCODONE [Concomitant]
     Active Substance: OXYCODONE
     Indication: Pain
  15. ASPIRIN [Concomitant]
     Active Substance: ASPIRIN
     Indication: Prophylaxis
  16. LUTEIN [Concomitant]
     Active Substance: LUTEIN
     Indication: Eye disorder
  17. FENTANYL [Concomitant]
     Active Substance: FENTANYL
     Indication: Pain
     Dosage: PATCH

REACTIONS (22)
  - Large intestinal stenosis [Recovered/Resolved]
  - Post procedural complication [Recovered/Resolved]
  - Drug hypersensitivity [Unknown]
  - Large intestinal stenosis [Not Recovered/Not Resolved]
  - Incisional hernia [Recovering/Resolving]
  - Dental caries [Not Recovered/Not Resolved]
  - Intestinal perforation [Recovered/Resolved]
  - Hypoaesthesia [Not Recovered/Not Resolved]
  - Chronic obstructive pulmonary disease [Recovering/Resolving]
  - Intestinal fistula infection [Recovering/Resolving]
  - Large intestinal stenosis [Recovered/Resolved]
  - Cerebrovascular accident [Recovered/Resolved]
  - Injection site papule [Recovered/Resolved]
  - Intestinal fistula infection [Recovered/Resolved]
  - Hernia [Unknown]
  - Sepsis [Recovered/Resolved]
  - Crohn^s disease [Recovered/Resolved]
  - Pneumonia [Recovered/Resolved]
  - Headache [Unknown]
  - Swelling [Recovering/Resolving]
  - Back pain [Recovering/Resolving]
  - Myalgia [Recovering/Resolving]

NARRATIVE: CASE EVENT DATE: 20130101
